FAERS Safety Report 6371952-8 (Version None)
Quarter: 2009Q3

REPORT INFORMATION
  Report Type: 
  Country: None (occurrence: None)
  Receive Date: 20090917
  Receipt Date: 20090904
  Transmission Date: 20100115
  Serious: Yes (Life-Threatening, Disabling)
  Sender: FDA-Public Use
  Company Number: ADR17502009

PATIENT
  Age: 45 Year
  Sex: Male

DRUGS (3)
  1. CITALOPRAM HYDROBROMIDE [Suspect]
     Indication: ANXIETY
     Dosage: UNKNOWN;ORAL
     Route: 048
     Dates: start: 20051118
  2. IBRUPROFEN [Concomitant]
  3. CLARITHROMYCIN [Concomitant]
     Dosage: 500MG 1/1 DAY

REACTIONS (3)
  - DRUG INTERACTION [None]
  - FALL [None]
  - GASTROINTESTINAL HAEMORRHAGE [None]
